FAERS Safety Report 9374748 (Version 2)
Quarter: 2013Q3

REPORT INFORMATION
  Report Type: Spontaneous
  Country: DE (occurrence: DE)
  Receive Date: 20130628
  Receipt Date: 20130711
  Transmission Date: 20140515
  Serious: Yes (Hospitalization, Other)
  Sender: FDA-Public Use
  Company Number: DE-JNJFOC-20130610756

PATIENT
  Sex: Male

DRUGS (5)
  1. ZYTIGA [Suspect]
     Indication: PROSTATE CANCER
     Route: 048
  2. FENTANYL [Suspect]
     Indication: ANALGESIC THERAPY
     Route: 062
  3. FIRMAGON [Concomitant]
     Indication: PRODUCT USED FOR UNKNOWN INDICATION
     Route: 065
     Dates: start: 201207
  4. ZOMETA [Concomitant]
     Indication: PRODUCT USED FOR UNKNOWN INDICATION
     Route: 065
     Dates: start: 201207
  5. NOVAMINSULFON [Concomitant]
     Indication: ANALGESIC THERAPY
     Route: 065

REACTIONS (2)
  - Nephrotic syndrome [Not Recovered/Not Resolved]
  - Nausea [Recovered/Resolved]
